FAERS Safety Report 4958904-7 (Version None)
Quarter: 2006Q1

REPORT INFORMATION
  Report Type: 
  Country: None (occurrence: None)
  Receive Date: 20060324
  Receipt Date: 20060303
  Transmission Date: 20060701
  Serious: Yes (Hospitalization, Disabling)
  Sender: FDA-Public Use
  Company Number: 384554

PATIENT
  Age: 20 Year
  Sex: Female
  Weight: 65.8 kg

DRUGS (3)
  1. ACCUTANE [Suspect]
     Indication: ACNE
     Dosage: ORAL
     Route: 048
     Dates: start: 19991206, end: 20000515
  2. MINOCYCLINE HCL [Concomitant]
  3. ORTHO CYCLEN-21 [Concomitant]

REACTIONS (66)
  - AFFECTIVE DISORDER [None]
  - ANAEMIA [None]
  - ASTHENIA [None]
  - BLOOD URINE PRESENT [None]
  - BREAST ABSCESS [None]
  - BREAST FIBROSIS [None]
  - CELLULITIS [None]
  - CHILLS [None]
  - COLITIS ULCERATIVE [None]
  - CONSTIPATION [None]
  - CONTUSION [None]
  - CROHN'S DISEASE [None]
  - CULTURE STOOL POSITIVE [None]
  - DEHYDRATION [None]
  - DERMAL CYST [None]
  - DERMATITIS CONTACT [None]
  - DRUG EFFECT DECREASED [None]
  - DRUG HYPERSENSITIVITY [None]
  - DRUG INEFFECTIVE [None]
  - DRUG INTOLERANCE [None]
  - DYSURIA [None]
  - ECZEMA [None]
  - EXCESSIVE GRANULATION TISSUE [None]
  - FALL [None]
  - GASTRITIS VIRAL [None]
  - GASTROENTERITIS [None]
  - GASTROINTESTINAL DISORDER [None]
  - GASTROOESOPHAGEAL REFLUX DISEASE [None]
  - HEADACHE [None]
  - HEPATIC CYST [None]
  - INCREASED UPPER AIRWAY SECRETION [None]
  - INFLAMMATORY BOWEL DISEASE [None]
  - INGROWING NAIL [None]
  - INITIAL INSOMNIA [None]
  - INSOMNIA [None]
  - INTESTINAL HAEMORRHAGE [None]
  - IRRITABLE BOWEL SYNDROME [None]
  - JOINT SPRAIN [None]
  - LIMB INJURY [None]
  - MAJOR DEPRESSION [None]
  - MELANOCYTIC NAEVUS [None]
  - MULTI-ORGAN DISORDER [None]
  - MUSCLE STRAIN [None]
  - MUSCULOSKELETAL PAIN [None]
  - MUSCULOSKELETAL STIFFNESS [None]
  - MYOFASCIAL PAIN SYNDROME [None]
  - NITRITE URINE PRESENT [None]
  - OBESITY [None]
  - PAIN [None]
  - PAIN IN EXTREMITY [None]
  - PHARYNGOLARYNGEAL PAIN [None]
  - PHOTOPHOBIA [None]
  - PHYSICAL ABUSE [None]
  - POLLAKIURIA [None]
  - PULMONARY CONGESTION [None]
  - RECTAL HAEMORRHAGE [None]
  - REFUSAL OF TREATMENT BY PATIENT [None]
  - RIB FRACTURE [None]
  - SCOLIOSIS [None]
  - SEBORRHOEIC KERATOSIS [None]
  - SINUS TACHYCARDIA [None]
  - SOMNOLENCE [None]
  - SPINAL OSTEOARTHRITIS [None]
  - TENDERNESS [None]
  - UPPER RESPIRATORY TRACT INFECTION [None]
  - VENTRICULAR EXTRASYSTOLES [None]
